FAERS Safety Report 21706822 (Version 1)
Quarter: 2022Q4

REPORT INFORMATION
  Report Type: Spontaneous
  Country: TW (occurrence: TW)
  Receive Date: 20221209
  Receipt Date: 20221209
  Transmission Date: 20230112
  Serious: Yes (Death, Hospitalization, Other)
  Sender: FDA-Public Use
  Company Number: TW-FreseniusKabi-FK202217613

PATIENT
  Age: 58 Year
  Sex: Male

DRUGS (3)
  1. OXALIPLATIN [Suspect]
     Active Substance: OXALIPLATIN
     Indication: Colorectal adenocarcinoma
     Dosage: 11 CYCLE OF FOLFOX CHEMOTHERAPY?BI-WEEKLY
  2. LEUCOVORIN [Concomitant]
     Active Substance: LEUCOVORIN
     Indication: Colorectal adenocarcinoma
     Dosage: 11 CYCLE OF FOLFOX CHEMOTHERAPY?BI-WEEKLY
  3. FLUOROURACIL [Concomitant]
     Active Substance: FLUOROURACIL
     Indication: Colorectal adenocarcinoma
     Dosage: 11 CYCLE OF FOLFOX CHEMOTHERAPY?BI-WEEKLY

REACTIONS (3)
  - Acute respiratory failure [Fatal]
  - Respiratory distress [Not Recovered/Not Resolved]
  - Pulmonary fibrosis [Not Recovered/Not Resolved]
